FAERS Safety Report 4339856-X (Version None)
Quarter: 2004Q2

REPORT INFORMATION
  Report Type: 
  Country: None (occurrence: None)
  Receive Date: 20040415
  Receipt Date: 20040415
  Transmission Date: 20050107
  Serious: Yes (Hospitalization)
  Sender: FDA-Public Use
  Company Number: None

PATIENT
  Age: 34 Year
  Sex: Female
  Weight: 44.6 kg

DRUGS (3)
  1. VANCOMYCIN [Suspect]
     Indication: TOOTH DISORDER
     Dates: start: 20030901
  2. CEFTRIAXONE [Suspect]
  3. WARFARIN SODIUM [Concomitant]

REACTIONS (2)
  - BLISTER [None]
  - RASH [None]
